FAERS Safety Report 25967284 (Version 1)
Quarter: 2025Q4

REPORT INFORMATION
  Report Type: Spontaneous
  Country: EU (occurrence: EU)
  Receive Date: 20251028
  Receipt Date: 20251028
  Transmission Date: 20260118
  Serious: Yes (Death, Life-Threatening, Hospitalization, Other)
  Sender: SANDOZ
  Company Number: EU-002147023-NVSC2020PL043275

PATIENT
  Age: 58 Year
  Sex: Female

DRUGS (14)
  1. CYTARABINE [Suspect]
     Active Substance: CYTARABINE
     Dosage: 2, CYCLIC
     Route: 065
     Dates: start: 2015
  2. CYTARABINE [Suspect]
     Active Substance: CYTARABINE
     Indication: Acute myeloid leukaemia
     Dosage: UNK UNK, CYCLIC
     Route: 065
     Dates: start: 201504
  3. CLADRIBINE [Suspect]
     Active Substance: CLADRIBINE
     Dosage: 2, CYCLIC
     Route: 065
     Dates: start: 2015
  4. CLADRIBINE [Suspect]
     Active Substance: CLADRIBINE
     Indication: Acute myeloid leukaemia
     Dosage: UNK UNK, CYCLIC
     Route: 065
     Dates: start: 201504
  5. DAUNORUBICIN [Suspect]
     Active Substance: DAUNORUBICIN
     Indication: Acute myeloid leukaemia
     Dosage: UNK UNK, CYCLIC
     Route: 065
     Dates: start: 201504
  6. FILGRASTIM [Suspect]
     Active Substance: FILGRASTIM
     Indication: Acute myeloid leukaemia
     Dosage: UNK
     Route: 065
  7. GRANULOCYTE COLONY-STIMULATING FACTOR NOS [Suspect]
     Active Substance: GRANULOCYTE COLONY-STIMULATING FACTOR NOS
     Indication: Acute myeloid leukaemia
     Dosage: 2, CYCLIC
     Route: 065
     Dates: start: 2015
  8. MITOXANTRONE HYDROCHLORIDE [Suspect]
     Active Substance: MITOXANTRONE HYDROCHLORIDE
     Indication: Acute myeloid leukaemia
     Dosage: 2, CYCLIC
     Route: 065
     Dates: start: 2015
  9. METHYLPREDNISOLONE [Suspect]
     Active Substance: METHYLPREDNISOLONE
     Indication: Immunosuppressant drug therapy
     Dosage: LOW DOSE
     Route: 048
     Dates: start: 2015
  10. AMIKACIN [Concomitant]
     Active Substance: AMIKACIN
     Indication: Product used for unknown indication
     Dosage: UNK
     Route: 065
  11. CEFTRIAXONE [Concomitant]
     Active Substance: CEFTRIAXONE
     Indication: Product used for unknown indication
     Dosage: UNK
     Route: 065
  12. INSULIN NOS [Concomitant]
     Active Substance: INSULIN NOS
     Indication: Product used for unknown indication
     Dosage: UNK
     Route: 065
  13. POSACONAZOLE [Concomitant]
     Active Substance: POSACONAZOLE
     Indication: Antifungal prophylaxis
     Dosage: UNK
     Route: 065
     Dates: start: 2015
  14. VORICONAZOLE [Concomitant]
     Active Substance: VORICONAZOLE
     Indication: Product used for unknown indication
     Dosage: UNK
     Route: 065

REACTIONS (25)
  - Escherichia infection [Fatal]
  - Mucormycosis [Fatal]
  - Mucormycosis [Fatal]
  - Sepsis [Fatal]
  - Aplastic anaemia [Fatal]
  - Escherichia sepsis [Fatal]
  - Haematoma [Unknown]
  - Tachycardia [Unknown]
  - Pleural effusion [Unknown]
  - Eschar [Unknown]
  - Skin necrosis [Unknown]
  - Disturbance in attention [Unknown]
  - Transaminases increased [Unknown]
  - Splenomegaly [Unknown]
  - Candida infection [Unknown]
  - Loss of consciousness [Unknown]
  - Condition aggravated [Fatal]
  - Pancytopenia [Unknown]
  - Dehydration [Unknown]
  - Decreased appetite [Unknown]
  - Ketoacidosis [Unknown]
  - General physical health deterioration [Unknown]
  - Agranulocytosis [Unknown]
  - Hyperglycaemia [Unknown]
  - Product use in unapproved indication [Unknown]

NARRATIVE: CASE EVENT DATE: 20150101
